FAERS Safety Report 6600080-9 (Version None)
Quarter: 2010Q1

REPORT INFORMATION
  Report Type: 
  Country: None (occurrence: None)
  Receive Date: 20100224
  Receipt Date: 20100212
  Transmission Date: 20100710
  Serious: Yes (Other)
  Sender: FDA-Public Use
  Company Number: PHEH2010US01697

PATIENT
  Sex: Male

DRUGS (4)
  1. TASIGNA [Suspect]
     Indication: CHRONIC MYELOID LEUKAEMIA
     Dosage: 400 MG, BID
     Route: 048
  2. TASIGNA [Suspect]
     Dosage: 400 MG, QAM / 200 MG QHS
     Route: 048
  3. TASIGNA [Suspect]
     Dosage: 100 MG, BID
     Route: 048
  4. DIGOXIN [Concomitant]
     Dosage: UNK, UNK

REACTIONS (1)
  - PAIN [None]
